FAERS Safety Report 24437802 (Version 1)
Quarter: 2024Q4

REPORT INFORMATION
  Report Type: Spontaneous
  Country: DE (occurrence: DE)
  Receive Date: 20241015
  Receipt Date: 20241015
  Transmission Date: 20250114
  Serious: Yes (Death, Other)
  Sender: SANDOZ
  Company Number: DE-NOVPHSZ-PHHY2018DE165036

PATIENT
  Age: 58 Year
  Sex: Male

DRUGS (4)
  1. ARGATROBAN [Suspect]
     Active Substance: ARGATROBAN
     Indication: Product used for unknown indication
     Dosage: 0.5 UG/KG, QD
     Route: 042
  2. ARGATROBAN [Suspect]
     Active Substance: ARGATROBAN
     Indication: Thrombosis prophylaxis
     Dosage: 2 UG/KG, QD
     Route: 042
  3. HEPARIN [Suspect]
     Active Substance: HEPARIN SODIUM
     Indication: Thrombosis prophylaxis
     Dosage: 30 IU/KG, UNK
     Route: 042
  4. HEPARIN [Suspect]
     Active Substance: HEPARIN SODIUM
     Indication: Product used for unknown indication

REACTIONS (6)
  - Acute hepatic failure [Fatal]
  - Haemorrhage [Fatal]
  - Heparin-induced thrombocytopenia [Fatal]
  - Hepatic failure [Fatal]
  - Cardiac ventricular thrombosis [Fatal]
  - Thrombosis [Fatal]
